FAERS Safety Report 7545248-2 (Version None)
Quarter: 2011Q2

REPORT INFORMATION
  Report Type: 
  Country: None (occurrence: None)
  Receive Date: 20110614
  Receipt Date: 20110603
  Transmission Date: 20111010
  Serious: Yes (Hospitalization, Other)
  Sender: FDA-Public Use
  Company Number: AU-ASTRAZENECA-2011SE34511

PATIENT
  Age: 0 Day
  Sex: Male
  Weight: 4.5 kg

DRUGS (5)
  1. FOLIC ACID [Concomitant]
     Indication: VITAMIN SUPPLEMENTATION
     Route: 064
  2. LAMOTRIGINE [Suspect]
     Indication: MOOD ALTERED
     Route: 064
  3. SPATONE [Concomitant]
     Indication: MINERAL SUPPLEMENTATION
     Route: 064
  4. ELEVIT [Concomitant]
     Indication: VITAMIN SUPPLEMENTATION
     Route: 064
  5. SEROQUEL XR [Suspect]
     Indication: PSYCHOTIC DISORDER
     Dosage: 50-250 MG DAILY
     Route: 064

REACTIONS (1)
  - DRUG WITHDRAWAL SYNDROME NEONATAL [None]
